FAERS Safety Report 7061300-2 (Version None)
Quarter: 2010Q4

REPORT INFORMATION
  Report Type: 
  Country: None (occurrence: None)
  Receive Date: 20101026
  Receipt Date: 20101021
  Transmission Date: 20110411
  Serious: No
  Sender: FDA-Public Use
  Company Number: US-PFIZER INC-2010134624

PATIENT
  Sex: Female

DRUGS (2)
  1. CHANTIX [Suspect]
     Dosage: 0.5 MG, UNK
     Route: 048
     Dates: start: 20100801
  2. CHANTIX [Suspect]
     Dosage: 1 MG, UNK

REACTIONS (2)
  - ABNORMAL DREAMS [None]
  - FEELING ABNORMAL [None]
